FAERS Safety Report 23416567 (Version 1)
Quarter: 2024Q1

REPORT INFORMATION
  Report Type: Report from Study
  Country: NL (occurrence: NL)
  Receive Date: 20240118
  Receipt Date: 20240118
  Transmission Date: 20240409
  Serious: Yes (Life-Threatening, Hospitalization)
  Sender: FDA-Public Use
  Company Number: NL-AstraZeneca-2024A011386

PATIENT
  Age: 1 Month
  Sex: Male
  Weight: 3.5 kg

DRUGS (2)
  1. SYNAGIS [Suspect]
     Active Substance: PALIVIZUMAB
     Indication: Pulmonary aplasia
     Dosage: 15MG/KG, MONTHLY
     Route: 030
     Dates: start: 20231229
  2. SYNAGIS [Suspect]
     Active Substance: PALIVIZUMAB
     Indication: Dextrocardia

REACTIONS (1)
  - Pyrexia [Not Recovered/Not Resolved]
